FAERS Safety Report 8488503-4 (Version None)
Quarter: 2012Q3

REPORT INFORMATION
  Report Type: 
  Country: None (occurrence: None)
  Receive Date: 20120705
  Receipt Date: 20120629
  Transmission Date: 20120928
  Serious: Yes (Other)
  Sender: FDA-Public Use
  Company Number: US-SANOFI-AVENTIS-2010SA063345

PATIENT
  Age: 68 Year
  Sex: Male
  Weight: 91 kg

DRUGS (6)
  1. CRESTOR [Concomitant]
  2. QUINAPRIL [Concomitant]
  3. FENOFIBRATE [Concomitant]
  4. MULTAQ [Suspect]
     Indication: ATRIAL FIBRILLATION
     Route: 048
     Dates: start: 20101009
  5. WARFARIN SODIUM [Suspect]
     Indication: ATRIAL FIBRILLATION
     Route: 065
     Dates: start: 20101009
  6. COREG [Concomitant]

REACTIONS (9)
  - ASTHENIA [None]
  - PHOTOSENSITIVITY REACTION [None]
  - CONDITION AGGRAVATED [None]
  - DIZZINESS [None]
  - HEART RATE DECREASED [None]
  - ATRIAL FIBRILLATION [None]
  - HYPOTENSION [None]
  - DRUG INEFFECTIVE [None]
  - BLOOD PRESSURE INCREASED [None]
